FAERS Safety Report 10199069 (Version 4)
Quarter: 2015Q4

REPORT INFORMATION
  Report Type: Spontaneous
  Country: US (occurrence: US)
  Receive Date: 20140527
  Receipt Date: 20151027
  Transmission Date: 20160304
  Serious: Yes (Hospitalization, Disabling, Other)
  Sender: FDA-Public Use
  Company Number: US-009507513-1405USA011573

PATIENT
  Sex: Female
  Weight: 90.7 kg

DRUGS (7)
  1. FOSAMAX [Suspect]
     Active Substance: ALENDRONATE SODIUM
     Indication: OSTEOPOROSIS
     Dosage: 70 MG, QW
     Route: 048
     Dates: start: 200310, end: 200501
  2. ALENDRONATE SODIUM. [Suspect]
     Active Substance: ALENDRONATE SODIUM
     Indication: OSTEOPOROSIS
     Dosage: 70 MG, QW
     Route: 048
     Dates: start: 20080603, end: 20100615
  3. OCUVITE [Concomitant]
     Active Substance: VITAMINS
     Dosage: 1 GTT, QD
     Dates: start: 1999
  4. ASPIRIN. [Concomitant]
     Active Substance: ASPIRIN
     Dosage: 81 MG, QD
     Route: 048
     Dates: start: 1999
  5. CALCIUM (UNSPECIFIED) [Concomitant]
     Active Substance: CALCIUM
     Dosage: 500 MG, QD
     Route: 048
     Dates: start: 1994
  6. FOSAMAX [Suspect]
     Active Substance: ALENDRONATE SODIUM
     Dosage: 70 MG, QW
     Route: 048
     Dates: start: 20051118, end: 200806
  7. ASCORBIC ACID. [Concomitant]
     Active Substance: ASCORBIC ACID
     Dosage: 500 MG, QD
     Route: 048
     Dates: start: 1989

REACTIONS (30)
  - Osteoporosis [Not Recovered/Not Resolved]
  - Femur fracture [Not Recovered/Not Resolved]
  - Vitamin D deficiency [Unknown]
  - Oral surgery [Unknown]
  - Hysterectomy [Unknown]
  - Oedema peripheral [Not Recovered/Not Resolved]
  - Open reduction of fracture [Unknown]
  - Neuropathy peripheral [Not Recovered/Not Resolved]
  - Wisdom teeth removal [Unknown]
  - Pulmonary hypertension [Unknown]
  - Oesophageal disorder [Unknown]
  - Spinal fusion surgery [Unknown]
  - Hip arthroplasty [Unknown]
  - Balance disorder [Unknown]
  - Hypertension [Not Recovered/Not Resolved]
  - Macular degeneration [Unknown]
  - Gastrooesophageal reflux disease [Unknown]
  - Basal cell carcinoma [Unknown]
  - Spinal operation [Unknown]
  - Back pain [Not Recovered/Not Resolved]
  - Limb asymmetry [Unknown]
  - Osteopenia [Unknown]
  - Osteoarthritis [Unknown]
  - Spinal laminectomy [Unknown]
  - Foraminotomy [Unknown]
  - Hip arthroplasty [Unknown]
  - Restless legs syndrome [Not Recovered/Not Resolved]
  - Sleep apnoea syndrome [Unknown]
  - Deep vein thrombosis [Unknown]
  - Femur fracture [Not Recovered/Not Resolved]

NARRATIVE: CASE EVENT DATE: 2004
